FAERS Safety Report 9458281 (Version 1)
Quarter: 2013Q3

REPORT INFORMATION
  Report Type: Spontaneous
  Country: US (occurrence: US)
  Receive Date: 20130814
  Receipt Date: 20130814
  Transmission Date: 20140515
  Serious: No
  Sender: FDA-Public Use
  Company Number: US-BAYER-2013-097476

PATIENT
  Age: 76 Year
  Sex: Female

DRUGS (1)
  1. DESONATE GEL [Suspect]
     Indication: ROSACEA
     Dosage: UNK
     Route: 061
     Dates: start: 20130809, end: 20130811

REACTIONS (2)
  - Swelling face [None]
  - Erythema [None]
